FAERS Safety Report 7112879-3 (Version None)
Quarter: 2010Q4

REPORT INFORMATION
  Report Type: 
  Country: None (occurrence: None)
  Receive Date: 20101119
  Receipt Date: 20100305
  Transmission Date: 20110411
  Serious: No
  Sender: FDA-Public Use
  Company Number: US-BRISTOL-MYERS SQUIBB COMPANY-15005861

PATIENT
  Age: 52 Year
  Sex: Male
  Weight: 100 kg

DRUGS (4)
  1. AVALIDE [Suspect]
     Indication: HYPERTENSION
     Dosage: 1DF-AVALIDE 300/12.5MG TABLETS.AVALIDE TAKEN FOR 8 YEARS.
     Route: 048
  2. MULTI-VITAMIN [Concomitant]
  3. CHONDROITIN SULFATE + GLUCOSAMINE [Concomitant]
  4. ASCORBIC ACID [Concomitant]

REACTIONS (2)
  - BLOOD PRESSURE INCREASED [None]
  - HEADACHE [None]
